FAERS Safety Report 13558978 (Version 1)
Quarter: 2017Q2

REPORT INFORMATION
  Report Type: Report from Study
  Country: FR (occurrence: FR)
  Receive Date: 20170518
  Receipt Date: 20170518
  Transmission Date: 20170830
  Serious: Yes (Death, Other)
  Sender: FDA-Public Use
  Company Number: FR-ACTELION-A-CH2016-144219

PATIENT
  Age: 74 Year
  Sex: Male

DRUGS (16)
  1. TRACLEER [Concomitant]
     Active Substance: BOSENTAN
     Indication: PULMONARY ARTERIAL HYPERTENSION
     Route: 048
  2. PARACETAMOL [Concomitant]
     Active Substance: ACETAMINOPHEN
  3. DIFFU K [Concomitant]
     Active Substance: POTASSIUM CHLORIDE
  4. ALLOPURINOL. [Concomitant]
     Active Substance: ALLOPURINOL
  5. ADCIRCA [Concomitant]
     Active Substance: TADALAFIL
  6. PRIMPERAN [Concomitant]
     Active Substance: METOCLOPRAMIDE HYDROCHLORIDE
  7. REFRESH CELLUVISC [Concomitant]
     Active Substance: CARBOXYMETHYLCELLULOSE SODIUM
  8. UPTRAVI [Suspect]
     Active Substance: SELEXIPAG
     Dosage: 800 ?G, BID
     Route: 048
     Dates: start: 20161104, end: 20161109
  9. UPTRAVI [Suspect]
     Active Substance: SELEXIPAG
     Dosage: 1200 ?G, BID
     Route: 048
     Dates: start: 20161117, end: 20161123
  10. LASILIX [Concomitant]
     Active Substance: FUROSEMIDE
  11. INEXIUM [Concomitant]
     Active Substance: ESOMEPRAZOLE
  12. UPTRAVI [Suspect]
     Active Substance: SELEXIPAG
     Indication: PULMONARY ARTERIAL HYPERTENSION
     Dosage: 200 ?G, BID
     Route: 048
     Dates: start: 20161014, end: 20161020
  13. UPTRAVI [Suspect]
     Active Substance: SELEXIPAG
     Dosage: 600 ?G, BID
     Route: 048
     Dates: start: 20161028, end: 20161103
  14. UPTRAVI [Suspect]
     Active Substance: SELEXIPAG
     Dosage: 400 ?G, BID
     Route: 048
     Dates: start: 20161021, end: 20161027
  15. UPTRAVI [Suspect]
     Active Substance: SELEXIPAG
     Dosage: 1000 ?G, BID
     Route: 048
     Dates: start: 20161110, end: 20161116
  16. UPTRAVI [Suspect]
     Active Substance: SELEXIPAG
     Dosage: 1400 ?G, BID
     Route: 048
     Dates: start: 20161124, end: 20170326

REACTIONS (21)
  - Pulmonary arterial hypertension [Fatal]
  - Decreased appetite [Not Recovered/Not Resolved]
  - Pain in extremity [Unknown]
  - Renal failure [Unknown]
  - Feeling abnormal [Not Recovered/Not Resolved]
  - Abdominal pain [Not Recovered/Not Resolved]
  - Disease progression [Fatal]
  - Right ventricular failure [Fatal]
  - Drug ineffective [Fatal]
  - Back pain [Not Recovered/Not Resolved]
  - Headache [Not Recovered/Not Resolved]
  - Sleep disorder [Not Recovered/Not Resolved]
  - Dizziness [Unknown]
  - Prostatitis [Unknown]
  - Diarrhoea [Unknown]
  - Hypotension [Fatal]
  - Malnutrition [Unknown]
  - Staphylococcal infection [Unknown]
  - Microcytic anaemia [Fatal]
  - Pericardial effusion [Unknown]
  - Dysphagia [Unknown]

NARRATIVE: CASE EVENT DATE: 20161014
